FAERS Safety Report 6623865-1 (Version None)
Quarter: 2010Q1

REPORT INFORMATION
  Report Type: 
  Country: None (occurrence: None)
  Receive Date: 20100310
  Receipt Date: 20100302
  Transmission Date: 20100710
  Serious: Yes (Hospitalization)
  Sender: FDA-Public Use
  Company Number: PHHY2010JP12431

PATIENT
  Age: 23 Year
  Sex: Male

DRUGS (1)
  1. TEGRETOL [Suspect]
     Indication: TEMPORAL LOBE EPILEPSY
     Dosage: 400 MG, UNK
     Route: 048

REACTIONS (2)
  - MULTIPLE FRACTURES [None]
  - SUICIDAL BEHAVIOUR [None]
